FAERS Safety Report 17252963 (Version 1)
Quarter: 2020Q1

REPORT INFORMATION
  Report Type: Spontaneous
  Country: US (occurrence: US)
  Receive Date: 20200109
  Receipt Date: 20200109
  Transmission Date: 20200409
  Serious: No
  Sender: FDA-Public Use
  Company Number: US-ABBVIE-19S-163-2639514-00

PATIENT
  Age: 87 Year
  Sex: Male

DRUGS (1)
  1. DUOPA [Suspect]
     Active Substance: CARBIDOPA\LEVODOPA
     Indication: PARKINSON^S DISEASE
     Route: 050

REACTIONS (9)
  - Therapeutic product effect decreased [Not Recovered/Not Resolved]
  - Impaired healing [Unknown]
  - Device leakage [Unknown]
  - Complication of device insertion [Unknown]
  - Device issue [Unknown]
  - Stoma complication [Unknown]
  - Stoma site reaction [Unknown]
  - Injury associated with device [Unknown]
  - Parkinson^s disease [Not Recovered/Not Resolved]

NARRATIVE: CASE EVENT DATE: 201901
